FAERS Safety Report 7729434-4 (Version None)
Quarter: 2011Q3

REPORT INFORMATION
  Report Type: 
  Country: None (occurrence: None)
  Receive Date: 20110906
  Receipt Date: 20110901
  Transmission Date: 20111222
  Serious: Yes (Hospitalization, Other)
  Sender: FDA-Public Use
  Company Number: US-JNJFOC-20100806063

PATIENT
  Sex: Female

DRUGS (3)
  1. TRICOR [Concomitant]
     Indication: BLOOD CHOLESTEROL DECREASED
     Route: 065
  2. LEVAQUIN [Suspect]
     Indication: BRONCHITIS
     Route: 048
     Dates: start: 20090501, end: 20090601
  3. ZOCOR [Concomitant]
     Indication: BLOOD CHOLESTEROL DECREASED
     Route: 065

REACTIONS (2)
  - DEPRESSION [None]
  - ROTATOR CUFF SYNDROME [None]
